FAERS Safety Report 4660108-2 (Version None)
Quarter: 2005Q2

REPORT INFORMATION
  Report Type: 
  Country: None (occurrence: None)
  Receive Date: 20050421
  Receipt Date: 20050104
  Transmission Date: 20051028
  Serious: Yes (Other)
  Sender: FDA-Public Use
  Company Number: 2004078754

PATIENT
  Age: 35 Year
  Sex: Female

DRUGS (2)
  1. RELPAX [Suspect]
     Indication: MIGRAINE
     Dosage: 40 MG (40 MG, 1 IN 1 D), ORAL
     Route: 048
     Dates: start: 20040916, end: 20040916
  2. FEXOFENADINE HYDROCHLORIDE [Concomitant]

REACTIONS (8)
  - CATATONIA [None]
  - DYSPHAGIA [None]
  - FACIAL PAIN [None]
  - FEAR [None]
  - MOVEMENT DISORDER [None]
  - NECK PAIN [None]
  - PAIN IN EXTREMITY [None]
  - VISION BLURRED [None]
